FAERS Safety Report 9837010 (Version 2)
Quarter: 2014Q1

REPORT INFORMATION
  Report Type: Spontaneous
  Country: US (occurrence: US)
  Receive Date: 20140123
  Receipt Date: 20140128
  Transmission Date: 20141002
  Serious: No
  Sender: FDA-Public Use
  Company Number: US-PFIZER INC-2014018633

PATIENT
  Age: 67 Year
  Sex: Male
  Weight: 53.97 kg

DRUGS (5)
  1. VIAGRA [Suspect]
     Indication: ERECTILE DYSFUNCTION
     Dosage: 50 MG, AS NEEDED
     Route: 048
     Dates: start: 2012
  2. VIAGRA [Suspect]
     Dosage: 100 MG, AS NEEDED
  3. ATENOLOL [Concomitant]
     Indication: HYPERTENSION
     Dosage: UNK
  4. GEMFIBROZIL [Concomitant]
     Indication: BLOOD CHOLESTEROL INCREASED
     Dosage: UNK
  5. TENORMIN [Concomitant]
     Dosage: UNK

REACTIONS (4)
  - Erythema [Unknown]
  - Chills [Unknown]
  - Drug ineffective [Unknown]
  - Blood cholesterol abnormal [Unknown]
